FAERS Safety Report 5219764-2 (Version None)
Quarter: 2007Q1

REPORT INFORMATION
  Report Type: 
  Country: None (occurrence: None)
  Receive Date: 20070125
  Receipt Date: 20070119
  Transmission Date: 20070707
  Serious: Yes (Other)
  Sender: FDA-Public Use
  Company Number: US-PFIZER INC-2006153438

PATIENT
  Sex: Male
  Weight: 93 kg

DRUGS (9)
  1. VIAGRA [Suspect]
     Indication: ERECTILE DYSFUNCTION
     Route: 048
     Dates: start: 20040101, end: 20060101
  2. METFORMIN [Concomitant]
  3. GLYBURIDE [Concomitant]
  4. AVANDIA [Concomitant]
  5. LISINOPRIL [Concomitant]
  6. PRILOSEC [Concomitant]
  7. ATENOLOL [Concomitant]
  8. CRESTOR [Concomitant]
  9. CLONAZEPAM [Concomitant]

REACTIONS (2)
  - BLINDNESS [None]
  - CATARACT [None]
